FAERS Safety Report 7414788-9 (Version None)
Quarter: 2011Q2

REPORT INFORMATION
  Report Type: 
  Country: None (occurrence: None)
  Receive Date: 20110414
  Receipt Date: 20110411
  Transmission Date: 20111010
  Serious: Yes (Death)
  Sender: FDA-Public Use
  Company Number: US-PFIZER INC-2011079405

PATIENT
  Age: 40 Year
  Sex: Female

DRUGS (4)
  1. HYDROCHLOROTHIAZIDE [Suspect]
  2. SERTRALINE HYDROCHLORIDE [Suspect]
  3. RISPERIDONE [Suspect]
  4. GLUCOVANCE [Suspect]

REACTIONS (4)
  - OVERDOSE [None]
  - TOXICITY TO VARIOUS AGENTS [None]
  - CARDIAC FAILURE [None]
  - LACTIC ACIDOSIS [None]
